FAERS Safety Report 7729750-6 (Version None)
Quarter: 2011Q3

REPORT INFORMATION
  Report Type: 
  Country: None (occurrence: None)
  Receive Date: 20110906
  Receipt Date: 20110831
  Transmission Date: 20111222
  Serious: Yes (Death)
  Sender: FDA-Public Use
  Company Number: CH-ROCHE-758759

PATIENT
  Sex: Female
  Weight: 80 kg

DRUGS (2)
  1. FERROUS SULFATE TAB [Concomitant]
  2. METHOXY POLYETHYLENE GLYCOL-EPOETIN BETA [Suspect]
     Route: 065
     Dates: start: 20100209

REACTIONS (2)
  - ARRHYTHMIA [None]
  - PULMONARY EMBOLISM [None]
